FAERS Safety Report 23543620 (Version 2)
Quarter: 2024Q1

REPORT INFORMATION
  Report Type: Spontaneous
  Country: SA (occurrence: SA)
  Receive Date: 20240220
  Receipt Date: 20240223
  Transmission Date: 20240410
  Serious: Yes (Hospitalization, Other)
  Sender: FDA-Public Use
  Company Number: SA-MYLANLABS-2024M1014156

PATIENT
  Age: 85 Year
  Sex: Female

DRUGS (1)
  1. ARIXTRA [Suspect]
     Active Substance: FONDAPARINUX SODIUM
     Indication: Thrombosis prophylaxis
     Dosage: 2.5 MILLIGRAM, Q24H
     Route: 058
     Dates: end: 20240125

REACTIONS (2)
  - Haematoma [Recovered/Resolved with Sequelae]
  - Superinfection [Recovered/Resolved with Sequelae]

NARRATIVE: CASE EVENT DATE: 20240125
